FAERS Safety Report 6959269-1 (Version None)
Quarter: 2010Q3

REPORT INFORMATION
  Report Type: 
  Country: None (occurrence: None)
  Receive Date: 20100831
  Receipt Date: 20100818
  Transmission Date: 20110219
  Serious: No
  Sender: FDA-Public Use
  Company Number: US-PFIZER INC-2010104852

PATIENT
  Sex: Female
  Weight: 77 kg

DRUGS (6)
  1. DETROL [Suspect]
     Indication: HYPERTONIC BLADDER
     Dosage: 2 MG, 1X/DAY
     Route: 048
     Dates: start: 20100811, end: 20100811
  2. PROCARDIA [Concomitant]
     Dosage: UNK
  3. LISINOPRIL [Concomitant]
     Indication: BLOOD PRESSURE INCREASED
     Dosage: UNK
  4. ACETYLSALICYLIC ACID [Concomitant]
     Dosage: UNK
  5. NIFEDIPINE [Concomitant]
     Dosage: UNK
  6. ALLOPURINOL [Concomitant]
     Dosage: UNK

REACTIONS (1)
  - FEELING HOT [None]
